FAERS Safety Report 8570805-4 (Version None)
Quarter: 2012Q3

REPORT INFORMATION
  Report Type: 
  Country: None (occurrence: None)
  Receive Date: 20120806
  Receipt Date: 20120727
  Transmission Date: 20120928
  Serious: No
  Sender: FDA-Public Use
  Company Number: US-009507513-1207USA012286

PATIENT

DRUGS (8)
  1. TAMSULOSIN HYDROCHLORIDE [Concomitant]
  2. SPIRIVA [Concomitant]
  3. ASPIRIN [Concomitant]
  4. PRINIVIL [Suspect]
     Route: 048
  5. METOPROLOL TARTRATE [Suspect]
     Route: 048
  6. LUMIGAN [Concomitant]
  7. ZOCOR [Concomitant]
     Route: 048
  8. SYMBICORT [Suspect]
     Dosage: 160/4.5 MCG TWO PUFFS, BID
     Route: 055

REACTIONS (2)
  - DYSPHONIA [None]
  - DRY MOUTH [None]
